FAERS Safety Report 10914850 (Version 1)
Quarter: 2015Q1

REPORT INFORMATION
  Report Type: Spontaneous
  Country: US (occurrence: US)
  Receive Date: 20150314
  Receipt Date: 20150314
  Transmission Date: 20150721
  Serious: No
  Sender: FDA-Public Use
  Company Number: US-CELGENEUS-USA-2015022349

PATIENT
  Sex: Female
  Weight: 118.04 kg

DRUGS (1)
  1. REVLIMID [Suspect]
     Active Substance: LENALIDOMIDE
     Indication: ECZEMA
     Dosage: 5 MILLIGRAM
     Route: 048
     Dates: start: 201405

REACTIONS (1)
  - Flatulence [Unknown]
